FAERS Safety Report 24411023 (Version 1)
Quarter: 2024Q4

REPORT INFORMATION
  Report Type: Spontaneous
  Country: DK (occurrence: DK)
  Receive Date: 20241008
  Receipt Date: 20241008
  Transmission Date: 20250114
  Serious: Yes (Other)
  Sender: TEVA
  Company Number: None

PATIENT
  Age: 42 Year
  Sex: Female

DRUGS (3)
  1. METHYLPHENIDATE [Suspect]
     Active Substance: METHYLPHENIDATE
     Indication: Attention deficit hyperactivity disorder
     Dosage: METHYLPHENIDATE ^TEVA^
     Route: 048
     Dates: start: 20231005, end: 20231015
  2. LISDEXAMFETAMINE DIMESYLATE [Suspect]
     Active Substance: LISDEXAMFETAMINE DIMESYLATE
     Indication: Attention deficit hyperactivity disorder
     Route: 048
     Dates: start: 20231025, end: 20231113
  3. RITALIN [Suspect]
     Active Substance: METHYLPHENIDATE HYDROCHLORIDE
     Indication: Attention deficit hyperactivity disorder
     Dosage: RITALIN UNO
     Route: 048
     Dates: start: 20231016, end: 20231024

REACTIONS (12)
  - Rectal abscess [Unknown]
  - Tic [Recovering/Resolving]
  - Oral disorder [Unknown]
  - Dyskinesia [Recovering/Resolving]
  - Confusional state [Unknown]
  - Depressed mood [Recovering/Resolving]
  - Fatigue [Not Recovered/Not Resolved]
  - Memory impairment [Unknown]
  - Hypoaesthesia [Unknown]
  - Muscle spasms [Unknown]
  - Mouth swelling [Unknown]
  - Angiopathy [Unknown]

NARRATIVE: CASE EVENT DATE: 20231001
